FAERS Safety Report 7594927-X (Version None)
Quarter: 2011Q3

REPORT INFORMATION
  Report Type: 
  Country: None (occurrence: None)
  Receive Date: 20110707
  Receipt Date: 20110624
  Transmission Date: 20111222
  Serious: Yes (Hospitalization)
  Sender: FDA-Public Use
  Company Number: US-CELGENEUS-163-21880-11063431

PATIENT
  Sex: Female
  Weight: 51.302 kg

DRUGS (12)
  1. PRILOSEC [Concomitant]
     Route: 065
  2. POTASSIUM [Concomitant]
     Route: 065
  3. SYNTHROID [Concomitant]
     Route: 065
  4. CORTISONE ACETATE [Concomitant]
     Route: 065
  5. FLUDROCORTISONE ACETATE [Concomitant]
     Route: 065
  6. MAGNESIUM [Concomitant]
     Route: 065
  7. MULTI-VITAMINS [Concomitant]
     Route: 065
  8. PREDNISONE [Concomitant]
     Route: 065
  9. VITAMIN D [Concomitant]
     Route: 065
  10. OXYCODONE HCL [Concomitant]
     Route: 065
  11. REVLIMID [Suspect]
     Indication: MULTIPLE MYELOMA
     Dosage: 5 MILLIGRAM
     Route: 048
     Dates: start: 20090918
  12. LORAZEPAM [Concomitant]
     Route: 065

REACTIONS (1)
  - LUNG DISORDER [None]
